FAERS Safety Report 12089906 (Version 1)
Quarter: 2016Q1

REPORT INFORMATION
  Report Type: Spontaneous
  Country: US (occurrence: US)
  Receive Date: 20160218
  Receipt Date: 20160218
  Transmission Date: 20160526
  Serious: Yes (Other)
  Sender: FDA-Public Use
  Company Number: US-ELI_LILLY_AND_COMPANY-US201602003648

PATIENT
  Age: 64 Year
  Sex: Female

DRUGS (6)
  1. DULOXETINE HYDROCHLORIDE. [Suspect]
     Active Substance: DULOXETINE HYDROCHLORIDE
     Indication: ANXIETY
  2. BABY ASPIRIN [Concomitant]
     Active Substance: ASPIRIN
     Indication: TRANSIENT ISCHAEMIC ATTACK
     Dosage: UNK, UNKNOWN
     Route: 065
     Dates: start: 2015
  3. CYMBALTA [Suspect]
     Active Substance: DULOXETINE HYDROCHLORIDE
     Indication: DEPRESSION
     Dosage: 60 MG, UNKNOWN
     Route: 065
     Dates: start: 2013, end: 2013
  4. CYMBALTA [Suspect]
     Active Substance: DULOXETINE HYDROCHLORIDE
     Indication: ANXIETY
     Dosage: 60 MG, UNKNOWN
     Route: 065
     Dates: start: 2013, end: 201601
  5. XANAX [Concomitant]
     Active Substance: ALPRAZOLAM
     Indication: SLEEP DISORDER
     Dosage: UNK, UNKNOWN
     Route: 065
  6. DULOXETINE HYDROCHLORIDE. [Suspect]
     Active Substance: DULOXETINE HYDROCHLORIDE
     Indication: DEPRESSION
     Dosage: 60 MG, UNKNOWN
     Route: 065
     Dates: start: 2013, end: 2013

REACTIONS (13)
  - Crying [Unknown]
  - Crying [Not Recovered/Not Resolved]
  - Drug ineffective [Unknown]
  - Diarrhoea [Not Recovered/Not Resolved]
  - Malaise [Unknown]
  - Vomiting [Recovered/Resolved]
  - Transient ischaemic attack [Recovered/Resolved]
  - Influenza [Unknown]
  - Headache [Not Recovered/Not Resolved]
  - Influenza [Unknown]
  - Drug withdrawal syndrome [Not Recovered/Not Resolved]
  - Drug dose omission [Unknown]
  - Nausea [Not Recovered/Not Resolved]

NARRATIVE: CASE EVENT DATE: 2013
